FAERS Safety Report 20502235 (Version 5)
Quarter: 2022Q2

REPORT INFORMATION
  Report Type: Other
  Country: BR (occurrence: None)
  Receive Date: 20220222
  Receipt Date: 20220527
  Transmission Date: 20220721
  Serious: Yes (Hospitalization, Other)
  Sender: FDA-Public Use
  Company Number: BR-ROCHE-3023973

PATIENT
  Sex: Male
  Weight: 90 kg

DRUGS (1)
  1. OCREVUS [Suspect]
     Active Substance: OCRELIZUMAB
     Indication: Multiple sclerosis
     Route: 065
     Dates: start: 202008

REACTIONS (10)
  - White blood cell count abnormal [Not Recovered/Not Resolved]
  - COVID-19 [Not Recovered/Not Resolved]
  - Myocardial infarction [Not Recovered/Not Resolved]
  - Nosocomial infection [Unknown]
  - Fall [Unknown]
  - Muscular weakness [Not Recovered/Not Resolved]
  - Oxygen saturation decreased [Not Recovered/Not Resolved]
  - Troponin abnormal [Not Recovered/Not Resolved]
  - General physical health deterioration [Unknown]
  - Bedridden [Not Recovered/Not Resolved]
